FAERS Safety Report 7955522-3 (Version None)
Quarter: 2011Q4

REPORT INFORMATION
  Report Type: 
  Country: None (occurrence: None)
  Receive Date: 20111202
  Receipt Date: 20111122
  Transmission Date: 20120403
  Serious: Yes (Hospitalization, Disabling, Other)
  Sender: FDA-Public Use
  Company Number: US-MERCK-1011USA00403

PATIENT
  Age: 72 Year
  Sex: Female
  Weight: 77 kg

DRUGS (9)
  1. FOSAMAX [Suspect]
     Route: 048
     Dates: start: 20020901, end: 20071226
  2. FOSAMAX [Suspect]
     Route: 048
     Dates: start: 20080401, end: 20100101
  3. PRILOSEC [Concomitant]
     Indication: GASTROOESOPHAGEAL REFLUX DISEASE
     Route: 065
     Dates: start: 19900101
  4. FOSAMAX [Suspect]
     Route: 048
     Dates: start: 20020901, end: 20071226
  5. SYNTHROID [Concomitant]
     Indication: HYPOTHYROIDISM
     Route: 065
  6. FOSAMAX [Suspect]
     Indication: OSTEOPENIA
     Route: 048
     Dates: start: 20020101, end: 20080201
  7. ALENDRONATE SODIUM [Suspect]
     Indication: OSTEOPOROSIS
     Route: 048
     Dates: start: 20080302
  8. FOSAMAX [Suspect]
     Indication: OSTEOPOROSIS
     Route: 048
     Dates: start: 20020101, end: 20080201
  9. FOSAMAX [Suspect]
     Route: 048
     Dates: start: 20080401, end: 20100101

REACTIONS (36)
  - INCISIONAL HERNIA [None]
  - MYELODYSPLASTIC SYNDROME [None]
  - LUMBAR RADICULOPATHY [None]
  - POST LAMINECTOMY SYNDROME [None]
  - FEMUR FRACTURE [None]
  - PYREXIA [None]
  - EYELID PTOSIS [None]
  - ANAEMIA [None]
  - STRESS FRACTURE [None]
  - NEURALGIA [None]
  - OEDEMA PERIPHERAL [None]
  - DYSPNOEA EXERTIONAL [None]
  - OSTEOPOROSIS [None]
  - OSTEOARTHRITIS [None]
  - DIVERTICULUM INTESTINAL [None]
  - MACROCYTOSIS [None]
  - INSOMNIA [None]
  - SCOLIOSIS [None]
  - CARDIOMEGALY [None]
  - FOOT DEFORMITY [None]
  - INTERVERTEBRAL DISC DEGENERATION [None]
  - SPINAL OSTEOARTHRITIS [None]
  - LIVER DISORDER [None]
  - UTERINE LEIOMYOMA [None]
  - PHARYNGITIS STREPTOCOCCAL [None]
  - GASTROENTERITIS [None]
  - METATARSALGIA [None]
  - LOW TURNOVER OSTEOPATHY [None]
  - ADNEXA UTERI CYST [None]
  - VIRAL INFECTION [None]
  - CARDIAC DISORDER [None]
  - HYPERTENSION [None]
  - IRRITABLE BOWEL SYNDROME [None]
  - SPINAL COLUMN STENOSIS [None]
  - SCIATICA [None]
  - COLONIC POLYP [None]
